FAERS Safety Report 21954176 (Version 1)
Quarter: 2023Q1

REPORT INFORMATION
  Report Type: Report from Study
  Country: US (occurrence: US)
  Receive Date: 20230204
  Receipt Date: 20230204
  Transmission Date: 20230418
  Serious: No
  Sender: FDA-Public Use
  Company Number: US-ACORDA-ACO_171766_2022

PATIENT
  Sex: Female

DRUGS (2)
  1. AMPYRA [Suspect]
     Active Substance: DALFAMPRIDINE
     Indication: Product used for unknown indication
     Dosage: 10 MILLIGRAM, BID
     Route: 065
  2. DALFAMPRIDINE [Suspect]
     Active Substance: DALFAMPRIDINE
     Indication: Product used for unknown indication
     Dosage: UNK
     Route: 065
     Dates: start: 20211013

REACTIONS (12)
  - Vision blurred [Unknown]
  - Neuralgia [Unknown]
  - Hypoaesthesia [Unknown]
  - Akathisia [Unknown]
  - Hot flush [Unknown]
  - Peroneal nerve palsy [Unknown]
  - Hypoaesthesia [Unknown]
  - Muscle tightness [None]
  - Pain [Unknown]
  - Plantar fasciitis [Unknown]
  - Pain in extremity [Unknown]
  - Fatigue [Unknown]
